FAERS Safety Report 13923748 (Version 1)
Quarter: 2017Q3

REPORT INFORMATION
  Report Type: Spontaneous
  Country: US (occurrence: None)
  Receive Date: 20170830
  Receipt Date: 20170830
  Transmission Date: 20171127
  Serious: No
  Sender: FDA-Public Use
  Company Number: None

PATIENT
  Age: 82 Year
  Sex: Male
  Weight: 83.91 kg

DRUGS (14)
  1. ZOCOR [Concomitant]
     Active Substance: SIMVASTATIN
  2. LATANOPROST. [Concomitant]
     Active Substance: LATANOPROST
  3. MELATONIN [Concomitant]
     Active Substance: MELATONIN
  4. RED RICE YEAST [Concomitant]
     Active Substance: DIETARY SUPPLEMENT
  5. S NIACIN [Concomitant]
  6. GLUCOSAMIN [Concomitant]
  7. ONE-A-DAY NOS [Concomitant]
     Active Substance: MINERALS\VITAMINS
  8. TRAM [Concomitant]
  9. ASPIRIN. [Concomitant]
     Active Substance: ASPIRIN
  10. SYNTHROID [Concomitant]
     Active Substance: LEVOTHYROXINE SODIUM
  11. EYE CAPS [Concomitant]
  12. SILDENAFIL CITRATE 20MG [Suspect]
     Active Substance: SILDENAFIL CITRATE
     Indication: ERECTILE DYSFUNCTION
     Dosage: 60, 80, OR 100 MG/DOSE 1 1/2 HOURS BEFORE SEX, MOUTH
     Route: 048
  13. TANDOSIN [Concomitant]
  14. CHONDROITIN [Concomitant]
     Active Substance: CHONDROITIN

REACTIONS (4)
  - Syncope [None]
  - Fall [None]
  - Laceration [None]
  - Dizziness [None]

NARRATIVE: CASE EVENT DATE: 20170805
